FAERS Safety Report 5472496-8 (Version None)
Quarter: 2007Q4

REPORT INFORMATION
  Report Type: 
  Country: None (occurrence: None)
  Receive Date: 20071001
  Receipt Date: 20070927
  Transmission Date: 20080405
  Serious: Yes (Hospitalization)
  Sender: FDA-Public Use
  Company Number: FR-SP-2006-00041

PATIENT
  Age: 57 Year
  Sex: Male

DRUGS (3)
  1. IMMUCYST [Suspect]
     Indication: CARCINOMA IN SITU OF BLADDER
     Route: 043
     Dates: start: 20041001, end: 20050117
  2. IMMUCYST [Suspect]
     Route: 043
     Dates: start: 20041001, end: 20050117
  3. IMMUCYST [Suspect]
     Route: 043
     Dates: start: 20041001, end: 20050117

REACTIONS (16)
  - ASTHENIA [None]
  - BONE MARROW DISORDER [None]
  - BOVINE TUBERCULOSIS [None]
  - CHOLESTASIS [None]
  - DYSPNOEA [None]
  - DYSURIA [None]
  - GRANULOMATOUS LIVER DISEASE [None]
  - HAEMATURIA [None]
  - HEPATOSPLENOMEGALY [None]
  - JAUNDICE [None]
  - LUNG DISORDER [None]
  - LYMPHOPENIA [None]
  - PELVIC PAIN [None]
  - PULMONARY TUBERCULOSIS [None]
  - PYREXIA [None]
  - WEIGHT DECREASED [None]
